FAERS Safety Report 24813426 (Version 2)
Quarter: 2025Q1

REPORT INFORMATION
  Report Type: Spontaneous
  Country: US (occurrence: US)
  Receive Date: 20250107
  Receipt Date: 20250113
  Transmission Date: 20250409
  Serious: No
  Sender: Unknown Manufacturer
  Company Number: US-MTPC-MTPA2025-0000157

PATIENT
  Sex: Male

DRUGS (2)
  1. RADICAVA ORS [Suspect]
     Active Substance: EDARAVONE
     Indication: Amyotrophic lateral sclerosis
     Dosage: 5 MILLILITER, QD,FOR 10 OUT OF 14 DAYS THEN 14 DAYS OFF
     Route: 048
     Dates: start: 202404
  2. RADICAVA ORS [Suspect]
     Active Substance: EDARAVONE
     Indication: Amyotrophic lateral sclerosis
     Dosage: 5 MILLILITER, QD,FOR 10 OUT OF 14 DAYS THEN 14 DAYS OFF
     Route: 048
     Dates: start: 202404

REACTIONS (2)
  - Muscular weakness [Not Recovered/Not Resolved]
  - Limb injury [Not Recovered/Not Resolved]
